FAERS Safety Report 12255022 (Version 1)
Quarter: 2016Q2

REPORT INFORMATION
  Report Type: Not Available
  Country: US (occurrence: US)
  Receive Date: 20160411
  Receipt Date: 20160411
  Transmission Date: 20160815
  Serious: Yes (Other)
  Sender: FDA-Public Use
  Company Number: US-ANIPHARMA-2016-US-002183

PATIENT
  Age: 44 Year
  Sex: Male

DRUGS (6)
  1. VORICONAZOLE. [Suspect]
     Active Substance: VORICONAZOLE
     Dosage: 200 MG TWICE DAILY
  2. PREDNISONE. [Concomitant]
     Active Substance: PREDNISONE
  3. LANSOPRAZOLE (NON-SPECIFIC) [Suspect]
     Active Substance: LANSOPRAZOLE
     Dosage: 30 MG DAILY
  4. CYCLOPHOSPHAMIDE. [Concomitant]
     Active Substance: CYCLOPHOSPHAMIDE
  5. SULFAMETHOXAZOLE + TRIMETHOPRIM (NON-SPECIFIC) [Concomitant]
  6. INSULIN [Concomitant]
     Active Substance: INSULIN NOS

REACTIONS (2)
  - Drug interaction [Unknown]
  - Hepatitis cholestatic [Unknown]
